FAERS Safety Report 8956125 (Version 1)
Quarter: 2012Q4

REPORT INFORMATION
  Report Type: 
  Country: BD (occurrence: BD)
  Receive Date: 20121210
  Receipt Date: 20121210
  Transmission Date: 20130627
  Serious: Yes (Death, Hospitalization, Other)
  Sender: FDA-Public Use
  Company Number: PHHY2012BD113033

PATIENT
  Age: 77 Year
  Sex: Female

DRUGS (2)
  1. SEBIVO [Suspect]
     Indication: HEPATITIS B
     Dosage: UNK
     Route: 048
     Dates: start: 20111020, end: 2012
  2. ENVIRAL [Concomitant]
     Indication: HEPATITIS B
     Dosage: UNK
     Route: 048
     Dates: start: 2012

REACTIONS (3)
  - Death [Fatal]
  - Hypertension [Unknown]
  - Diabetes mellitus [Unknown]
